FAERS Safety Report 23570362 (Version 1)
Quarter: 2024Q1

REPORT INFORMATION
  Report Type: Report from Study
  Country: US (occurrence: US)
  Receive Date: 20240227
  Receipt Date: 20240227
  Transmission Date: 20240410
  Serious: No
  Sender: FDA-Public Use
  Company Number: US-BIOVITRUM-2024-US-002233

PATIENT
  Age: 70 Year
  Sex: Female

DRUGS (1)
  1. DOPTELET [Suspect]
     Active Substance: AVATROMBOPAG MALEATE
     Indication: Immune thrombocytopenia
     Dosage: DAILY
     Route: 048
     Dates: start: 202210, end: 202402

REACTIONS (3)
  - Product dose omission issue [Unknown]
  - Dyspnoea [Unknown]
  - Drug hypersensitivity [Unknown]
